FAERS Safety Report 17248855 (Version 1)
Quarter: 2020Q1

REPORT INFORMATION
  Report Type: Report from Study
  Country: CO (occurrence: CO)
  Receive Date: 20200108
  Receipt Date: 20200108
  Transmission Date: 20200409
  Serious: Yes (Other)
  Sender: FDA-Public Use
  Company Number: CO-INCYTE CORPORATION-2019IN011635

PATIENT

DRUGS (1)
  1. JAKAVI [Suspect]
     Active Substance: RUXOLITINIB
     Indication: POLYCYTHAEMIA VERA
     Dosage: 5 MG, Q12H
     Route: 048
     Dates: start: 20191029, end: 20191216

REACTIONS (7)
  - Dizziness [Recovered/Resolved]
  - Decreased appetite [Not Recovered/Not Resolved]
  - Hypertension [Unknown]
  - Dyspepsia [Unknown]
  - Depressed mood [Recovered/Resolved]
  - Asphyxia [Unknown]
  - Head discomfort [Unknown]

NARRATIVE: CASE EVENT DATE: 20191031
